FAERS Safety Report 8999061 (Version 1)
Quarter: 2013Q1

REPORT INFORMATION
  Report Type: Spontaneous
  Country: AU (occurrence: AU)
  Receive Date: 20130103
  Receipt Date: 20130103
  Transmission Date: 20140127
  Serious: Yes (Death)
  Sender: FDA-Public Use
  Company Number: PHHY2012AU121247

PATIENT
  Age: 89 Year
  Sex: Male
  Weight: 45 kg

DRUGS (1)
  1. SANDOSTATIN LAR [Suspect]
     Indication: CARCINOID SYNDROME
     Dosage: 20 MG, UNK
     Route: 030
     Dates: end: 20121219

REACTIONS (2)
  - Myocardial infarction [Fatal]
  - Dementia [Unknown]
